FAERS Safety Report 14609921 (Version 1)
Quarter: 2018Q1

REPORT INFORMATION
  Report Type: Spontaneous
  Country: US (occurrence: US)
  Receive Date: 20180307
  Receipt Date: 20180307
  Transmission Date: 20180509
  Serious: Yes (Other)
  Sender: FDA-Public Use
  Company Number: None

PATIENT
  Age: 69 Year
  Sex: Male
  Weight: 88.2 kg

DRUGS (8)
  1. ZYTIGA [Suspect]
     Active Substance: ABIRATERONE ACETATE
     Indication: PROSTATE CANCER
     Route: 048
     Dates: start: 20171113, end: 20180306
  2. GABAPENTIN. [Concomitant]
     Active Substance: GABAPENTIN
  3. SIMVASTATIN. [Concomitant]
     Active Substance: SIMVASTATIN
  4. LANTUS SOLOSTAR [Concomitant]
     Active Substance: INSULIN GLARGINE
  5. PREDNISONE. [Concomitant]
     Active Substance: PREDNISONE
  6. ESOMEPRAZOLE [Concomitant]
     Active Substance: ESOMEPRAZOLE
  7. FUROSEMIDE. [Concomitant]
     Active Substance: FUROSEMIDE
  8. ONE DAILY ADULT VITAMINS [Concomitant]

REACTIONS (1)
  - Disease progression [None]
